FAERS Safety Report 13592838 (Version 3)
Quarter: 2017Q2

REPORT INFORMATION
  Report Type: Report from Study
  Country: GB (occurrence: GB)
  Receive Date: 20170530
  Receipt Date: 20170623
  Transmission Date: 20170830
  Serious: Yes (Hospitalization, Other)
  Sender: FDA-Public Use
  Company Number: GB-TORRENT-00014939

PATIENT
  Age: 55 Year
  Sex: Male

DRUGS (20)
  1. RAMIPRIL. [Suspect]
     Active Substance: RAMIPRIL
  2. KAPAKE [Concomitant]
     Active Substance: ACETAMINOPHEN\CODEINE PHOSPHATE
  3. SERTRALINE HYDROCHLORIDE. [Concomitant]
     Active Substance: SERTRALINE HYDROCHLORIDE
  4. ACETYLSALICYLIC ACID/ASPIRIN [Concomitant]
  5. SACUBITRIL VALSARTAN SODIUM HYDRATE [Concomitant]
  6. CARVEDILOL. [Suspect]
     Active Substance: CARVEDILOL
  7. GLYCERYL TRINITRATE [Concomitant]
     Active Substance: NITROGLYCERIN
  8. PARACETAMOL [Concomitant]
     Active Substance: ACETAMINOPHEN
  9. FUROSEMIDE. [Suspect]
     Active Substance: FUROSEMIDE
  10. LOTRIDERM [Concomitant]
     Active Substance: BETAMETHASONE DIPROPIONATE\CLOTRIMAZOLE
  11. QUETIAPINE FUMARATE. [Suspect]
     Active Substance: QUETIAPINE FUMARATE
  12. IVABRADINE [Suspect]
     Active Substance: IVABRADINE
  13. ATORVASTATIN [Concomitant]
     Active Substance: ATORVASTATIN
  14. OMEPRAZOLE. [Suspect]
     Active Substance: OMEPRAZOLE
  15. CODEINE PHOSPHATE [Concomitant]
     Active Substance: CODEINE PHOSPHATE
  16. ISOSORBIDE MONONITRATE. [Suspect]
     Active Substance: ISOSORBIDE MONONITRATE
  17. ENTRESTO [Concomitant]
     Active Substance: SACUBITRIL\VALSARTAN
  18. FOLIC ACID. [Concomitant]
     Active Substance: FOLIC ACID
  19. METHOTREXATE. [Concomitant]
     Active Substance: METHOTREXATE
  20. BOCOCIZUMAB [Suspect]
     Active Substance: BOCOCIZUMAB

REACTIONS (11)
  - Angina pectoris [Unknown]
  - Anaemia [Unknown]
  - Oedema peripheral [Not Recovered/Not Resolved]
  - Pulmonary oedema [Unknown]
  - Hypotension [Recovered/Resolved]
  - Contusion [Recovered/Resolved]
  - Fluid retention [Unknown]
  - Cardiac failure [Unknown]
  - Ventricular dysfunction [Unknown]
  - Presyncope [Unknown]
  - Psoriasis [Unknown]

NARRATIVE: CASE EVENT DATE: 20130919
